FAERS Safety Report 25906497 (Version 1)
Quarter: 2025Q4

REPORT INFORMATION
  Report Type: Spontaneous
  Country: CN (occurrence: CN)
  Receive Date: 20251010
  Receipt Date: 20251010
  Transmission Date: 20260118
  Serious: Yes (Hospitalization)
  Sender: BEIGENE
  Company Number: CN-BEIGENE-BGN-2025-016890

PATIENT
  Age: 65 Year
  Weight: 51 kg

DRUGS (2)
  1. TISLELIZUMAB [Suspect]
     Active Substance: TISLELIZUMAB
     Indication: Lung cancer metastatic
     Dosage: 200 MILLIGRAM, Q3WK, D1
  2. BEVACIZUMAB [Concomitant]
     Active Substance: BEVACIZUMAB
     Indication: Lung cancer metastatic
     Dosage: 382 MILLIGRAM, Q3WK, D1

REACTIONS (5)
  - Pyrexia [Recovering/Resolving]
  - Chills [Recovering/Resolving]
  - C-reactive protein increased [Recovering/Resolving]
  - White blood cell count increased [Recovering/Resolving]
  - Neutrophil percentage increased [Recovering/Resolving]
